FAERS Safety Report 8975364 (Version 1)
Quarter: 2012Q4

REPORT INFORMATION
  Report Type: 
  Country: ES (occurrence: ES)
  Receive Date: 20121220
  Receipt Date: 20121220
  Transmission Date: 20130627
  Serious: Yes (Hospitalization, Other)
  Sender: FDA-Public Use
  Company Number: ES-OTSUKA-EU-2012-10440

PATIENT

DRUGS (1)
  1. PLETAL [Suspect]
     Indication: INTERMITTENT CLAUDICATION
     Dosage: 200 Mg milligram(s), UNK
     Route: 048
     Dates: start: 20121118, end: 20121121

REACTIONS (2)
  - Angina pectoris [Recovered/Resolved]
  - Acute coronary syndrome [Recovered/Resolved]
